FAERS Safety Report 8547994-0 (Version None)
Quarter: 2012Q3

REPORT INFORMATION
  Report Type: 
  Country: None (occurrence: None)
  Receive Date: 20120729
  Receipt Date: 20120723
  Transmission Date: 20120928
  Serious: Yes (Hospitalization)
  Sender: FDA-Public Use
  Company Number: US-009507513-1207USA009591

PATIENT

DRUGS (4)
  1. JANUVIA [Suspect]
     Dosage: UNK
     Route: 048
  2. GLYBURIDE [Suspect]
     Dosage: UNK
     Route: 048
  3. PRAVASTATIN SODIUM [Suspect]
     Dosage: UNK
     Route: 048
  4. METFORMIN HYDROCHLORIDE [Concomitant]
     Route: 048

REACTIONS (3)
  - HYPERLIPASAEMIA [None]
  - HYPOGLYCAEMIA [None]
  - OVERDOSE [None]
